FAERS Safety Report 4486864-4 (Version None)
Quarter: 2004Q4

REPORT INFORMATION
  Report Type: 
  Country: None (occurrence: None)
  Receive Date: 20041027
  Receipt Date: 20040721
  Transmission Date: 20050328
  Serious: Yes (Hospitalization, Other)
  Sender: FDA-Public Use
  Company Number: PHEH2004US07918

PATIENT
  Age: 23 Year
  Sex: Female

DRUGS (2)
  1. ZELNORM [Suspect]
     Indication: IRRITABLE BOWEL SYNDROME
     Dosage: 6 MG, BID
     Route: 048
     Dates: start: 20040610, end: 20040709
  2. ORAL CONTRACEPTIVE NOS [Suspect]
     Indication: CONTRACEPTION

REACTIONS (23)
  - ABDOMINAL DISCOMFORT [None]
  - ABDOMINAL PAIN [None]
  - BLOOD PRESSURE DECREASED [None]
  - COLITIS ISCHAEMIC [None]
  - COLONIC HAEMATOMA [None]
  - DIARRHOEA HAEMORRHAGIC [None]
  - DRUG INTERACTION [None]
  - EPIGASTRIC DISCOMFORT [None]
  - ERYTHEMA [None]
  - FAECES HARD [None]
  - GASTROINTESTINAL HAEMORRHAGE [None]
  - HAEMATOCHEZIA [None]
  - HAEMATOCRIT ABNORMAL [None]
  - HAEMOGLOBIN ABNORMAL [None]
  - INTESTINAL ISCHAEMIA [None]
  - LARGE INTESTINAL ULCER [None]
  - LOOSE STOOLS [None]
  - MUCOSAL INFLAMMATION [None]
  - NAUSEA [None]
  - ODYNOPHAGIA [None]
  - SIGMOIDOSCOPY ABNORMAL [None]
  - STOOLS WATERY [None]
  - VOMITING [None]
